FAERS Safety Report 17470901 (Version 2)
Quarter: 2020Q1

REPORT INFORMATION
  Report Type: Spontaneous
  Country: US (occurrence: US)
  Receive Date: 20200227
  Receipt Date: 20200311
  Transmission Date: 20200409
  Serious: No
  Sender: FDA-Public Use
  Company Number: US-ASTRAZENECA-2020SE28112

PATIENT
  Age: 510 Day
  Sex: Male
  Weight: 10.8 kg

DRUGS (1)
  1. SYNAGIS [Suspect]
     Active Substance: PALIVIZUMAB
     Route: 030

REACTIONS (3)
  - Wheezing [Unknown]
  - Incorrect product administration duration [Unknown]
  - Malaise [Unknown]

NARRATIVE: CASE EVENT DATE: 20200122
